FAERS Safety Report 19513819 (Version 1)
Quarter: 2021Q3

REPORT INFORMATION
  Report Type: Report from Study
  Country: US (occurrence: US)
  Receive Date: 20210710
  Receipt Date: 20210710
  Transmission Date: 20211014
  Serious: Yes (Other)
  Sender: FDA-Public Use
  Company Number: US-JNJFOC-20210706222

PATIENT
  Age: 48 Year
  Sex: Female

DRUGS (24)
  1. SILDENAFIL. [Concomitant]
     Active Substance: SILDENAFIL
     Route: 065
  2. PANTOPRAZOLE [Concomitant]
     Active Substance: PANTOPRAZOLE
  3. ZOFRAN [Concomitant]
     Active Substance: ONDANSETRON HYDROCHLORIDE
  4. TYLENOL [Concomitant]
     Active Substance: ACETAMINOPHEN
  5. CYCLOBENZAPRINE. [Concomitant]
     Active Substance: CYCLOBENZAPRINE
  6. MUPIROCIN. [Concomitant]
     Active Substance: MUPIROCIN
  7. SELENIUM [Concomitant]
     Active Substance: SELENIUM
  8. TREPROSTINIL. [Concomitant]
     Active Substance: TREPROSTINIL
     Indication: PULMONARY HYPERTENSION
     Route: 065
  9. POTASSIUM CHLORIDE. [Concomitant]
     Active Substance: POTASSIUM CHLORIDE
  10. DICLOFENAC [Concomitant]
     Active Substance: DICLOFENAC
  11. WIXELA INHUB [Concomitant]
     Active Substance: FLUTICASONE PROPIONATE\SALMETEROL XINAFOATE
  12. MACITENTAN [Suspect]
     Active Substance: MACITENTAN
     Indication: PULMONARY HYPERTENSION
     Route: 048
     Dates: start: 20191206
  13. SPIRONOLACTONE. [Concomitant]
     Active Substance: SPIRONOLACTONE
  14. SIMVASTATIN. [Concomitant]
     Active Substance: SIMVASTATIN
  15. ARIPIPRAZOLE. [Concomitant]
     Active Substance: ARIPIPRAZOLE
  16. NICODERM CQ [Concomitant]
     Active Substance: NICOTINE
  17. MONTELUKAST [Concomitant]
     Active Substance: MONTELUKAST SODIUM
  18. GABAPENTIN. [Concomitant]
     Active Substance: GABAPENTIN
  19. LOPERAMIDE HYDROCHLORIDE. [Concomitant]
     Active Substance: LOPERAMIDE HYDROCHLORIDE
  20. NORCO [Concomitant]
     Active Substance: ACETAMINOPHEN\HYDROCODONE BITARTRATE
  21. LAMOTRIGINE. [Concomitant]
     Active Substance: LAMOTRIGINE
  22. QUETIAPINE. [Concomitant]
     Active Substance: QUETIAPINE
  23. ESCITALOPRAMS [Concomitant]
  24. BUMETANIDE. [Concomitant]
     Active Substance: BUMETANIDE

REACTIONS (3)
  - Skin laceration [Unknown]
  - Folliculitis [Recovering/Resolving]
  - Abscess [Recovering/Resolving]

NARRATIVE: CASE EVENT DATE: 20210604
